FAERS Safety Report 11923884 (Version 2)
Quarter: 2016Q4

REPORT INFORMATION
  Report Type: Spontaneous
  Country: US (occurrence: US)
  Receive Date: 20160118
  Receipt Date: 20161129
  Transmission Date: 20170206
  Serious: Yes (Hospitalization)
  Sender: FDA-Public Use
  Company Number: US-AUROBINDO-AUR-APL-2016-00137

PATIENT
  Age: 42 Year
  Sex: Male

DRUGS (9)
  1. AMLODIPINE [Concomitant]
     Active Substance: AMLODIPINE BESYLATE
     Indication: HYPERTENSION
     Route: 065
  2. EMTRICITABINE [Concomitant]
     Active Substance: EMTRICITABINE
     Indication: HIV INFECTION
     Route: 065
  3. THIAMINE. [Concomitant]
     Active Substance: THIAMINE
     Indication: PRODUCT USED FOR UNKNOWN INDICATION
     Route: 065
  4. RISPERIDONE 0.5MG [Suspect]
     Active Substance: RISPERIDONE
     Indication: PSYCHOTIC DISORDER
     Dosage: 0.5 MG, TWO TIMES A DAY
     Route: 065
  5. RISPERIDONE 0.5MG [Interacting]
     Active Substance: RISPERIDONE
     Indication: AGGRESSION
     Dosage: 2 MG, TWO TIMES A DAY
     Route: 065
  6. METOPROLOL. [Concomitant]
     Active Substance: METOPROLOL
     Indication: HYPERTENSION
     Route: 065
  7. RISPERIDONE 0.5MG [Interacting]
     Active Substance: RISPERIDONE
     Indication: CONFUSIONAL STATE
     Dosage: 1 MG, TWO TIMES A DAY
     Route: 065
  8. LOPINAVIR + RITONAVIR [Interacting]
     Active Substance: LOPINAVIR\RITONAVIR
     Indication: HIV INFECTION
     Dosage: UNK
     Route: 065
  9. TENOVIRAL [Concomitant]
     Indication: HIV INFECTION
     Dosage: UNK

REACTIONS (3)
  - Angioedema [Recovered/Resolved]
  - Drug interaction [Recovered/Resolved]
  - Swelling [Recovered/Resolved]
